FAERS Safety Report 9377349 (Version 2)
Quarter: 2013Q3

REPORT INFORMATION
  Report Type: Spontaneous
  Country: JP (occurrence: JP)
  Receive Date: 20130701
  Receipt Date: 20130812
  Transmission Date: 20140515
  Serious: Yes (Hospitalization)
  Sender: FDA-Public Use
  Company Number: JP-EISAI INC-E3810-06505-SPO-JP

PATIENT
  Age: 75 Year
  Sex: Female

DRUGS (3)
  1. PARIET (RABEPRAZOLE) [Suspect]
     Indication: OESOPHAGEAL CARCINOMA
     Route: 048
     Dates: start: 20130617, end: 20130619
  2. ULCERLMIN [Concomitant]
     Indication: OESOPHAGEAL CARCINOMA
     Route: 048
     Dates: start: 20130607
  3. KENTAN [Concomitant]
     Indication: OESOPHAGEAL CARCINOMA
     Route: 048
     Dates: start: 20130607

REACTIONS (1)
  - Eczema [Recovered/Resolved]
